FAERS Safety Report 7379793-X (Version None)
Quarter: 2011Q1

REPORT INFORMATION
  Report Type: 
  Country: None (occurrence: None)
  Receive Date: 20110323
  Receipt Date: 20110323
  Transmission Date: 20110831
  Serious: No
  Sender: FDA-Public Use
  Company Number: None

PATIENT
  Age: 86 Year
  Sex: Female
  Weight: 77.1115 kg

DRUGS (4)
  1. LOSARTAN POTASSIUM [Suspect]
     Indication: HYPERTENSION
     Dosage: 100 MG ONCE A DAY PO
     Route: 048
     Dates: start: 20101111, end: 20101208
  2. LOSARTAN POTASSIUM [Suspect]
     Indication: ARTERIOSCLEROSIS
     Dosage: 100 MG ONCE A DAY PO
     Route: 048
     Dates: start: 20101111, end: 20101208
  3. COZAAR [Concomitant]
  4. MICARDIS [Concomitant]

REACTIONS (2)
  - NAUSEA [None]
  - PRODUCT USED FOR UNKNOWN INDICATION [None]
